FAERS Safety Report 6611243-0 (Version None)
Quarter: 2010Q1

REPORT INFORMATION
  Report Type: 
  Country: None (occurrence: None)
  Receive Date: 20100301
  Receipt Date: 20100301
  Transmission Date: 20100710
  Serious: Yes (Other)
  Sender: FDA-Public Use
  Company Number: None

PATIENT
  Sex: Male
  Weight: 63.5036 kg

DRUGS (1)
  1. PHENTOIN EX 100 MG CAPSULE SUN PHARMA [Suspect]
     Indication: EPILEPSY
     Dosage: 100MG 4 TIMES DAILY PO
     Route: 048
     Dates: start: 20100129, end: 20100219

REACTIONS (9)
  - ANTICONVULSANT DRUG LEVEL INCREASED [None]
  - BACK PAIN [None]
  - BALANCE DISORDER [None]
  - DIZZINESS [None]
  - DYSPEPSIA [None]
  - FALL [None]
  - HEADACHE [None]
  - MALAISE [None]
  - PRODUCT SUBSTITUTION ISSUE [None]
